FAERS Safety Report 4934912-7 (Version None)
Quarter: 2006Q1

REPORT INFORMATION
  Report Type: 
  Country: None (occurrence: None)
  Receive Date: 20060306
  Receipt Date: 20060306
  Transmission Date: 20060701
  Serious: Yes (Other)
  Sender: FDA-Public Use
  Company Number: None

PATIENT
  Age: 65 Year
  Sex: Female
  Weight: 63.5036 kg

DRUGS (1)
  1. EFUDEX [Suspect]
     Indication: ACTINIC KERATOSIS
     Dosage: TOPICAL   ONCE PER DAY   TOP
     Route: 061
     Dates: start: 20060104, end: 20060112

REACTIONS (9)
  - BLISTER [None]
  - BURNING SENSATION [None]
  - DISCOMFORT [None]
  - ERYTHEMA [None]
  - EYE SWELLING [None]
  - LACRIMATION INCREASED [None]
  - PAIN [None]
  - SWELLING [None]
  - THERAPY NON-RESPONDER [None]
